FAERS Safety Report 8784732 (Version 2)
Quarter: 2013Q2

REPORT INFORMATION
  Report Type: Spontaneous
  Country: FR (occurrence: None)
  Receive Date: 20120831
  Receipt Date: 20130426
  Transmission Date: 20140414
  Serious: Yes (Hospitalization)
  Sender: FDA-Public Use
  Company Number: 2012CP000103

PATIENT
  Age: 74 Year
  Sex: 0

DRUGS (16)
  1. PERFALGAN [Suspect]
     Indication: PAIN
     Route: 042
     Dates: start: 20120605, end: 20120608
  2. CEFTRIAXONE [Suspect]
     Route: 042
     Dates: start: 20120605, end: 20120609
  3. METRONIDAZOLE (METRONIDAZOLE) [Suspect]
     Route: 042
     Dates: start: 20120608, end: 20120609
  4. ARIXTRA [Suspect]
     Indication: THROMBOSIS PROPHYLAXIS
     Route: 058
     Dates: start: 201205
  5. BISOPROLOL [Suspect]
     Indication: CARDIAC FAILURE
     Route: 048
     Dates: start: 20120607, end: 20120608
  6. AMLODIPINE (AMLODIPINE) [Suspect]
     Indication: HYPERTENSION
     Route: 048
     Dates: start: 20120602
  7. CRESTOR [Suspect]
     Indication: DYSLIPIDAEMIA
     Route: 048
     Dates: start: 2012
  8. RISPERIDONE (RISPERIDONE) [Suspect]
     Indication: DEPRESSION
     Route: 048
     Dates: start: 201205, end: 20120613
  9. DIFFU-K [Suspect]
     Indication: HYPOKALAEMIA
     Route: 048
     Dates: start: 20120530
  10. VENLAFAXINE HCL [Suspect]
     Indication: DEPRESSION
     Route: 048
     Dates: end: 20120612
  11. CHOLECALCIFEROL [Suspect]
     Indication: VITAMIN D DEFICIENCY
     Route: 048
     Dates: start: 20120606, end: 20120607
  12. DIGOXIN (DIGOXIN) [Suspect]
     Indication: CARDIAC FAILURE
     Route: 048
     Dates: start: 20120601
  13. FUROSEMIDE (FUROSEMIDE) [Suspect]
     Indication: CARDIAC FAILURE
     Route: 048
     Dates: start: 20120530, end: 20120605
  14. KARDEGIC [Concomitant]
  15. TRANSIPEG (MACROGOL 3350 + ELECTROLYTES) [Concomitant]
  16. TARDYFERON [Concomitant]

REACTIONS (4)
  - Hepatitis [None]
  - Dyspnoea [None]
  - Palpitations [None]
  - Epstein-Barr virus test positive [None]
